FAERS Safety Report 9229512 (Version 1)
Quarter: 2013Q2

REPORT INFORMATION
  Report Type: Spontaneous
  Country: US (occurrence: US)
  Receive Date: 20130412
  Receipt Date: 20130412
  Transmission Date: 20140414
  Serious: Yes (Life-Threatening)
  Sender: FDA-Public Use
  Company Number: US-009507513-1304USA005225

PATIENT
  Age: 35 Year
  Sex: Male

DRUGS (4)
  1. SAPHRIS [Suspect]
     Indication: BIPOLAR I DISORDER
     Dosage: UNK
     Route: 048
     Dates: start: 20130320, end: 20130408
  2. WELLBUTRIN [Concomitant]
  3. LUNESTA [Concomitant]
  4. RISPERDAL [Concomitant]

REACTIONS (1)
  - Suicidal ideation [Unknown]
